FAERS Safety Report 9399295 (Version 3)
Quarter: 2014Q1

REPORT INFORMATION
  Report Type: Spontaneous
  Country: US (occurrence: US)
  Receive Date: 20130715
  Receipt Date: 20140121
  Transmission Date: 20141002
  Serious: No
  Sender: FDA-Public Use
  Company Number: US-PFIZER INC-2013205399

PATIENT
  Age: 53 Year
  Sex: Female

DRUGS (10)
  1. LYRICA [Suspect]
     Dosage: 150 MG, 3X/DAY
     Dates: end: 2013
  2. CIPRO [Concomitant]
     Dosage: 500 MG, UNK
  3. SYNTHROID [Concomitant]
     Dosage: 200 UG, UNK
  4. PROZAC [Concomitant]
     Dosage: 40 MG, UNK
  5. ZOMIG [Concomitant]
     Dosage: 5 MG, UNK
  6. LISINOPRIL W/HYDROCHLOROTHIAZIDE [Concomitant]
     Dosage: LISINOPRIL 20 MG-HYDROCHLOROTHIAZIDE 25 MG
  7. AMLODIPINE BESYLATE [Concomitant]
     Dosage: 5 MG, UNK
  8. HYDROCHLOROTHIAZIDE [Concomitant]
     Dosage: 25 MG, UNK
  9. BENTYL [Concomitant]
     Dosage: 20 MG, UNK
  10. CLONAZEPAM [Concomitant]
     Dosage: 0.5 MG, UNK

REACTIONS (3)
  - Pain in extremity [Not Recovered/Not Resolved]
  - Pain [Not Recovered/Not Resolved]
  - Frustration [Not Recovered/Not Resolved]
